FAERS Safety Report 7000623-X (Version None)
Quarter: 2010Q3

REPORT INFORMATION
  Report Type: 
  Country: None (occurrence: None)
  Receive Date: 20100920
  Receipt Date: 20100910
  Transmission Date: 20110219
  Serious: Yes (Hospitalization, Other)
  Sender: FDA-Public Use
  Company Number: US-JNJFOC-20100808074

PATIENT
  Sex: Female
  Weight: 42.64 kg

DRUGS (5)
  1. DURAGESIC-100 [Suspect]
     Indication: BACK PAIN
     Route: 062
  2. FENTANYL CITRATE [Suspect]
     Indication: BACK PAIN
     Route: 062
  3. DIOVAN [Suspect]
     Indication: HYPERTENSION
     Route: 048
  4. VICODIN [Concomitant]
     Indication: PAIN
     Route: 048
  5. DILAUDID [Concomitant]
     Indication: PAIN
     Route: 065

REACTIONS (6)
  - DEHYDRATION [None]
  - DIARRHOEA [None]
  - DRUG INEFFECTIVE [None]
  - HYPOTENSION [None]
  - MALAISE [None]
  - WRONG TECHNIQUE IN DRUG USAGE PROCESS [None]
